FAERS Safety Report 4497090-7 (Version None)
Quarter: 2004Q4

REPORT INFORMATION
  Report Type: 
  Country: None (occurrence: None)
  Receive Date: 20041110
  Receipt Date: 20041029
  Transmission Date: 20050328
  Serious: Yes (Hospitalization)
  Sender: FDA-Public Use
  Company Number: GB-JNJFOC-20041004985

PATIENT
  Sex: Female

DRUGS (7)
  1. REMICADE [Suspect]
     Indication: RHEUMATOID ARTHRITIS
     Route: 042
  2. COPROXAMOL [Concomitant]
  3. COPROXAMOL [Concomitant]
  4. NABUMETONE [Concomitant]
  5. METHOTREXATE [Concomitant]
  6. LOSEC [Concomitant]
  7. CYCLIZINE [Concomitant]

REACTIONS (1)
  - CHEST WALL PAIN [None]
